FAERS Safety Report 6588408-X (Version None)
Quarter: 2010Q1

REPORT INFORMATION
  Report Type: 
  Country: None (occurrence: None)
  Receive Date: 20100218
  Receipt Date: 20091118
  Transmission Date: 20100710
  Serious: Yes (Other)
  Sender: FDA-Public Use
  Company Number: US-ALLERGAN-0914679US

PATIENT
  Sex: Female
  Weight: 58.957 kg

DRUGS (6)
  1. BOTOX [Suspect]
     Indication: MUSCLE SPASMS
     Dosage: 500 UNITS, SINGLE
     Route: 030
     Dates: start: 20090930, end: 20090930
  2. BOTOX [Suspect]
     Indication: MIGRAINE
  3. BOTOX [Suspect]
     Indication: DYSTONIA
  4. MULTI-VITAMIN [Concomitant]
  5. KLONOPIN [Concomitant]
  6. ARTANE [Concomitant]

REACTIONS (7)
  - ASTHENIA [None]
  - BACK PAIN [None]
  - FATIGUE [None]
  - MALAISE [None]
  - MUSCLE ATROPHY [None]
  - MUSCULAR WEAKNESS [None]
  - WEIGHT DECREASED [None]
